FAERS Safety Report 21055730 (Version 2)
Quarter: 2022Q3

REPORT INFORMATION
  Report Type: Spontaneous
  Country: NL (occurrence: None)
  Receive Date: 20220708
  Receipt Date: 20220907
  Transmission Date: 20221027
  Serious: Yes (Other)
  Sender: FDA-Public Use
  Company Number: None

PATIENT
  Age: 81 Year
  Sex: Male
  Weight: 83 kg

DRUGS (12)
  1. AMIODARONE [Suspect]
     Active Substance: AMIODARONE
     Indication: Ventricular tachycardia
     Dosage: UP TO 1200MG/24 HOURS DESL.2DD 200MG TABL
     Route: 065
  2. AMIODARONE [Suspect]
     Active Substance: AMIODARONE
     Dosage: 900MG/24HRS
     Route: 065
     Dates: start: 20211209, end: 20220518
  3. PANTOPRAZOLE SODIUM [Concomitant]
     Active Substance: PANTOPRAZOLE SODIUM
     Indication: Product used for unknown indication
     Route: 065
  4. SPIRONOLACTONE [Concomitant]
     Active Substance: SPIRONOLACTONE
     Indication: Product used for unknown indication
     Route: 065
  5. MINERALS\VITAMINS [Concomitant]
     Active Substance: MINERALS\VITAMINS
     Indication: Product used for unknown indication
     Dosage: 2DD
     Route: 065
  6. ELIQUIS [Concomitant]
     Active Substance: APIXABAN
     Indication: Product used for unknown indication
     Route: 065
  7. VITAMINE PREPARATION AND MAGNESIUM [Concomitant]
     Indication: Product used for unknown indication
     Dosage: 2DD
     Route: 065
  8. ATENOLOL [Concomitant]
     Active Substance: ATENOLOL
     Indication: Product used for unknown indication
     Route: 065
  9. DAPAGLIFLOZIN [Concomitant]
     Active Substance: DAPAGLIFLOZIN
     Indication: Product used for unknown indication
     Route: 065
  10. ENTRESTO [Concomitant]
     Active Substance: SACUBITRIL\VALSARTAN
     Indication: Product used for unknown indication
     Dosage: 49/51 MG (MILLIGRAM)
     Route: 065
  11. GLUCOSAMINE [Concomitant]
     Active Substance: GLUCOSAMINE
     Indication: Product used for unknown indication
     Dosage: 2DD
     Route: 065
  12. ROSUVASTATIN [Concomitant]
     Active Substance: ROSUVASTATIN
     Indication: Product used for unknown indication
     Route: 065

REACTIONS (5)
  - Nervousness [Not Recovered/Not Resolved]
  - Restlessness [Not Recovered/Not Resolved]
  - Poor quality sleep [Recovering/Resolving]
  - Hallucination [Recovering/Resolving]
  - Negative thoughts [Recovering/Resolving]

NARRATIVE: CASE EVENT DATE: 20220307
